FAERS Safety Report 21196361 (Version 1)
Quarter: 2022Q3

REPORT INFORMATION
  Report Type: Spontaneous
  Country: US (occurrence: None)
  Receive Date: 20220810
  Receipt Date: 20220810
  Transmission Date: 20221027
  Serious: Yes (Hospitalization)
  Sender: FDA-Public Use
  Company Number: None

PATIENT
  Age: 73 Year
  Sex: Female

DRUGS (2)
  1. ARALAST NP [Suspect]
     Active Substance: .ALPHA.1-PROTEINASE INHIBITOR HUMAN
     Indication: Alpha-1 antitrypsin deficiency
     Dosage: 4172MG EVERY WEEK PIV BUTTERFLY?
     Route: 050
     Dates: start: 202207
  2. ARALAST NP [Suspect]
     Active Substance: .ALPHA.1-PROTEINASE INHIBITOR HUMAN
     Indication: Alpha-1 antitrypsin deficiency
     Dosage: ?4172MG EVERY WEEK PIV BUTTERFLY
     Dates: start: 202208

REACTIONS (4)
  - Dyspnoea [None]
  - Oxygen saturation decreased [None]
  - Bacterial infection [None]
  - Viral infection [None]

NARRATIVE: CASE EVENT DATE: 20220808
